FAERS Safety Report 18145647 (Version 1)
Quarter: 2020Q3

REPORT INFORMATION
  Report Type: Spontaneous
  Country: DE (occurrence: DE)
  Receive Date: 20200813
  Receipt Date: 20200813
  Transmission Date: 20201103
  Serious: Yes (Other)
  Sender: FDA-Public Use
  Company Number: DE-TEVA-2020-DE-1812641

PATIENT
  Age: 32 Year
  Sex: Male

DRUGS (2)
  1. VENLAFAXIN ABZ 225 MG RETARDTABLETTEN [Suspect]
     Active Substance: VENLAFAXINE HYDROCHLORIDE
     Indication: DEPRESSION
     Dosage: FOR YEARS
     Route: 048
  2. VENLAFAXIN ABZ 225 MG RETARDTABLETTEN [Suspect]
     Active Substance: VENLAFAXINE HYDROCHLORIDE
     Indication: OBSESSIVE-COMPULSIVE DISORDER
     Dosage: 675 ? 900 MG DAILY
     Route: 048
     Dates: start: 20200521, end: 20200601

REACTIONS (7)
  - Accidental overdose [Unknown]
  - Borderline personality disorder [Unknown]
  - Condition aggravated [Unknown]
  - Bipolar disorder [Unknown]
  - Abnormal behaviour [Unknown]
  - Fatigue [Not Recovered/Not Resolved]
  - Panic attack [Recovered/Resolved]

NARRATIVE: CASE EVENT DATE: 2020
